FAERS Safety Report 18594166 (Version 1)
Quarter: 2020Q4

REPORT INFORMATION
  Report Type: Spontaneous
  Country: CA (occurrence: CA)
  Receive Date: 20201209
  Receipt Date: 20201209
  Transmission Date: 20210114
  Serious: Yes (Hospitalization, Other)
  Sender: FDA-Public Use
  Company Number: NVSC2020CA323476

PATIENT
  Age: 37 Year
  Sex: Female

DRUGS (4)
  1. TAFINLAR [Suspect]
     Active Substance: DABRAFENIB MESYLATE
     Indication: BRAF V600E MUTATION POSITIVE
  2. TRAMETINIB [Suspect]
     Active Substance: TRAMETINIB
     Indication: BRAF V600E MUTATION POSITIVE
  3. TAFINLAR [Suspect]
     Active Substance: DABRAFENIB MESYLATE
     Indication: COLORECTAL CANCER
     Route: 065
  4. TRAMETINIB [Suspect]
     Active Substance: TRAMETINIB
     Indication: COLORECTAL CANCER
     Route: 065

REACTIONS (17)
  - Thrombocytopenia [Unknown]
  - Anaemia [Unknown]
  - Dyspnoea [Unknown]
  - Acute kidney injury [Unknown]
  - Blood creatinine increased [Recovering/Resolving]
  - Pulmonary alveolar haemorrhage [Unknown]
  - Epistaxis [Unknown]
  - Malaise [Unknown]
  - Coagulation test abnormal [Recovering/Resolving]
  - Vomiting [Unknown]
  - Diarrhoea [Unknown]
  - Cough [Unknown]
  - Hypoxia [Unknown]
  - Nausea [Unknown]
  - Pyrexia [Not Recovered/Not Resolved]
  - Haemoptysis [Not Recovered/Not Resolved]
  - Concomitant disease aggravated [Unknown]
